FAERS Safety Report 13975821 (Version 1)
Quarter: 2017Q3

REPORT INFORMATION
  Report Type: Spontaneous
  Country: GB (occurrence: GB)
  Receive Date: 20170915
  Receipt Date: 20170915
  Transmission Date: 20171128
  Serious: Yes (Other)
  Sender: FDA-Public Use
  Company Number: GB-SHIRE-GB201721791

PATIENT

DRUGS (1)
  1. XAGRID [Suspect]
     Active Substance: ANAGRELIDE HYDROCHLORIDE
     Indication: ESSENTIAL THROMBOCYTHAEMIA
     Route: 048
     Dates: start: 20170809, end: 20170823

REACTIONS (4)
  - Rash pruritic [Not Recovered/Not Resolved]
  - Erythema [Unknown]
  - Secretion discharge [Unknown]
  - Skin warm [Unknown]
